FAERS Safety Report 13070894 (Version 1)
Quarter: 2016Q4

REPORT INFORMATION
  Report Type: Spontaneous
  Country: IT (occurrence: IT)
  Receive Date: 20161229
  Receipt Date: 20161229
  Transmission Date: 20170207
  Serious: Yes (Other)
  Sender: FDA-Public Use
  Company Number: IT-TEVA-723618ACC

PATIENT

DRUGS (1)
  1. NAPROXEN. [Suspect]
     Active Substance: NAPROXEN

REACTIONS (4)
  - Renal disorder [Unknown]
  - Cardiovascular disorder [Unknown]
  - Liver disorder [Unknown]
  - Gastrointestinal disorder [Unknown]
